FAERS Safety Report 7518187-0 (Version None)
Quarter: 2011Q2

REPORT INFORMATION
  Report Type: 
  Country: None (occurrence: None)
  Receive Date: 20110531
  Receipt Date: 20110531
  Transmission Date: 20111010
  Serious: No
  Sender: FDA-Public Use
  Company Number: None

PATIENT
  Age: 44 Year
  Sex: Female
  Weight: 83.0083 kg

DRUGS (6)
  1. ALPRAZOLAM [Concomitant]
  2. CYMBALTA [Concomitant]
  3. SAPHRIS [Concomitant]
  4. ZOLPIDEM [Suspect]
     Indication: INSOMNIA
     Dates: start: 20100902, end: 20110526
  5. ZOLPIDEM [Suspect]
     Indication: DEPRESSION
     Dates: start: 20100902, end: 20110526
  6. FANAPT [Concomitant]

REACTIONS (2)
  - DRUG INEFFECTIVE [None]
  - PRODUCT SUBSTITUTION ISSUE [None]
